FAERS Safety Report 20345810 (Version 1)
Quarter: 2022Q1

REPORT INFORMATION
  Report Type: Spontaneous
  Country: US (occurrence: None)
  Receive Date: 20220115
  Receipt Date: 20220115
  Transmission Date: 20220423
  Serious: Yes (Hospitalization)
  Sender: FDA-Public Use
  Company Number: None

PATIENT
  Sex: Male
  Weight: 42 kg

DRUGS (5)
  1. MERCAPTOPURINE [Suspect]
     Active Substance: MERCAPTOPURINE
     Dates: end: 20220105
  2. METHOTREXATE [Suspect]
     Active Substance: METHOTREXATE
     Dates: end: 20220105
  3. VINCRISTINE SULFATE [Suspect]
     Active Substance: VINCRISTINE SULFATE
     Dates: end: 20211229
  4. LEVOCARNITINE [Concomitant]
     Active Substance: LEVOCARNITINE
  5. LEVOTHYROXINE [Concomitant]
     Active Substance: LEVOTHYROXINE

REACTIONS (3)
  - Lipase increased [None]
  - Pancreatitis acute [None]
  - Abdominal pain [None]

NARRATIVE: CASE EVENT DATE: 20220105
